FAERS Safety Report 16608178 (Version 1)
Quarter: 2019Q3

REPORT INFORMATION
  Report Type: Spontaneous
  Country: US (occurrence: US)
  Receive Date: 20190722
  Receipt Date: 20190722
  Transmission Date: 20191004
  Serious: Yes (Other)
  Sender: FDA-Public Use
  Company Number: US-CURIUM PHARMACEUTICALS-200700190

PATIENT
  Age: 66 Year
  Sex: Female

DRUGS (2)
  1. ULTRA-TECHNEKOW DTE [Suspect]
     Active Substance: TECHNETIUM TC-99M SODIUM PERTECHNETATE
     Indication: HEPATOBILIARY SCAN
     Route: 042
     Dates: start: 20070306, end: 20070306
  2. CHOLETEC [Concomitant]
     Active Substance: TECHNETIUM TC-99M MEBROFENIN
     Indication: HEPATOBILIARY SCAN
     Dosage: UNKNOWN
     Route: 042
     Dates: start: 20070306, end: 20070306

REACTIONS (1)
  - Hypersensitivity [Recovered/Resolved]

NARRATIVE: CASE EVENT DATE: 20070306
